FAERS Safety Report 6331916-7 (Version None)
Quarter: 2009Q3

REPORT INFORMATION
  Report Type: 
  Country: None (occurrence: None)
  Receive Date: 20090826
  Receipt Date: 20090818
  Transmission Date: 20100115
  Serious: Yes (Other)
  Sender: FDA-Public Use
  Company Number: 357564

PATIENT
  Age: 7 Year
  Sex: 0

DRUGS (3)
  1. PRECEDEX [Suspect]
     Indication: SEDATIVE THERAPY
     Dosage: .5 MCG/KG
  2. MIDAZOLAM HCL [Concomitant]
  3. PENTOBARBITAL SODIUM [Concomitant]

REACTIONS (2)
  - OFF LABEL USE [None]
  - UPPER AIRWAY OBSTRUCTION [None]
